FAERS Safety Report 15607545 (Version 4)
Quarter: 2019Q1

REPORT INFORMATION
  Report Type: Spontaneous
  Country: US (occurrence: US)
  Receive Date: 20181112
  Receipt Date: 20190314
  Transmission Date: 20190417
  Serious: No
  Sender: FDA-Public Use
  Company Number: US-PFIZER INC-2018434137

PATIENT
  Age: 59 Year
  Sex: Female
  Weight: 49.89 kg

DRUGS (26)
  1. VIAGRA [Suspect]
     Active Substance: SILDENAFIL CITRATE
     Indication: RAYNAUD^S PHENOMENON
     Dosage: 50 MG, TWICE DAILY
     Route: 048
  2. VIAGRA [Suspect]
     Active Substance: SILDENAFIL CITRATE
     Indication: GRAFT VERSUS HOST DISEASE
     Dosage: 50 MG, ONCE DAILY (EVERY DAY)
     Route: 048
  3. VITAMIN C [Concomitant]
     Active Substance: ASCORBIC ACID
     Dosage: UNK
  4. AZELAIC ACID. [Concomitant]
     Active Substance: AZELAIC ACID
     Indication: RASH
     Dosage: UNK, TWICE DAILY
     Route: 061
  5. BIOTIN [Concomitant]
     Active Substance: BIOTIN
     Dosage: UNK
     Route: 048
  6. OMEGA-3 FISH OIL +VITAMIN D [Concomitant]
     Dosage: UNK
  7. HYDREA [Concomitant]
     Active Substance: HYDROXYUREA
     Dosage: 1 G, DAILY
     Route: 048
  8. PREDNISONE. [Concomitant]
     Active Substance: PREDNISONE
     Dosage: 5 MG, DAILY
     Route: 048
  9. SULFAMETHOXAZOLE AND TRIMETHOPRIM [Concomitant]
     Active Substance: SULFAMETHOXAZOLE\TRIMETHOPRIM
     Dosage: 20 ML, DAILY
     Route: 048
  10. TACROLIMUS. [Concomitant]
     Active Substance: TACROLIMUS
     Dosage: UNK, TWICE DAILY
     Route: 061
  11. VALACYCLOVIR HCL [Concomitant]
     Active Substance: VALACYCLOVIR HYDROCHLORIDE
     Indication: INFECTION
     Dosage: 500 MG, ONCE DAILY
  12. METRONIDAZOLE. [Concomitant]
     Active Substance: METRONIDAZOLE
     Indication: ROSACEA
     Dosage: UNK, DAILY
     Route: 061
  13. MUPIROCIN. [Concomitant]
     Active Substance: MUPIROCIN
     Dosage: UNK, TWICE DAILY
     Route: 061
  14. PREDNISONE. [Concomitant]
     Active Substance: PREDNISONE
     Dosage: 10 MG, DAILY
     Route: 048
  15. TRIAMCINOLONE ACETONIDE. [Concomitant]
     Active Substance: TRIAMCINOLONE ACETONIDE
     Dosage: UNK, TWICE DAILY
     Route: 061
  16. VALTREX [Concomitant]
     Active Substance: VALACYCLOVIR HYDROCHLORIDE
     Dosage: 500 MG, TWICE DAILY
     Route: 048
  17. HYDROCODONE/ACETAMINOPHEN [Concomitant]
     Active Substance: ACETAMINOPHEN\HYDROCODONE
     Dosage: UNK (1 TO 2 TABLETS)
     Route: 048
  18. PREDNISONE. [Concomitant]
     Active Substance: PREDNISONE
     Dosage: 10 MG, DAILY
     Route: 048
  19. RUXOLITINIB PHOSPHATE [Concomitant]
     Active Substance: RUXOLITINIB PHOSPHATE
     Dosage: 10 MG, DAILY
     Route: 048
  20. VIAGRA [Suspect]
     Active Substance: SILDENAFIL CITRATE
     Indication: PULMONARY ARTERIAL HYPERTENSION
  21. VITAMIN D [Concomitant]
     Active Substance: CHOLECALCIFEROL
     Dosage: 1000 IU, DAILY
     Route: 048
  22. OMEPRAZOLE. [Concomitant]
     Active Substance: OMEPRAZOLE
     Dosage: 20 MG, UNK
  23. JUBLIA [Concomitant]
     Active Substance: EFINACONAZOLE
     Dosage: UNK, DAILY (TO AFFECTED NAIL)
     Route: 061
  24. RESTASIS [Concomitant]
     Active Substance: CYCLOSPORINE
     Dosage: UNK
  25. COLCHICINE. [Concomitant]
     Active Substance: COLCHICINE
     Indication: GOUT
     Dosage: 1.8 MG, DAILY (2 TABLETS ONCE THEN ONE TABLET 30 MINUTES LATER)
  26. JAKAFI [Concomitant]
     Active Substance: RUXOLITINIB
     Indication: CHRONIC LEUKAEMIA
     Dosage: 10 MG, TWICE DAILY

REACTIONS (4)
  - Discomfort [Unknown]
  - Drug effective for unapproved indication [Unknown]
  - Product use issue [Unknown]
  - Pain [Unknown]
